FAERS Safety Report 5139366-6 (Version None)
Quarter: 2006Q4

REPORT INFORMATION
  Report Type: 
  Country: None (occurrence: None)
  Receive Date: 20061026
  Receipt Date: 20061026
  Transmission Date: 20070319
  Serious: No
  Sender: FDA-Public Use
  Company Number: None

PATIENT
  Age: 7 Year
  Sex: Male
  Weight: 20.4119 kg

DRUGS (1)
  1. QUETIAPINE FUMARATE [Suspect]
     Indication: ANXIETY
     Dosage: 50 MG PO QAM + Q12PM,  100MG
     Route: 048
     Dates: start: 20060411

REACTIONS (3)
  - DYSPHEMIA [None]
  - EXCESSIVE EYE BLINKING [None]
  - TIC [None]
